FAERS Safety Report 18348937 (Version 1)
Quarter: 2020Q4

REPORT INFORMATION
  Report Type: Spontaneous
  Country: US (occurrence: US)
  Receive Date: 20201005
  Receipt Date: 20201005
  Transmission Date: 20210114
  Serious: Yes (Death, Hospitalization)
  Sender: FDA-Public Use
  Company Number: None

PATIENT
  Age: 8 Year
  Sex: Male
  Weight: 22.5 kg

DRUGS (9)
  1. VITAMIN D [Concomitant]
     Active Substance: VITAMIN D NOS
  2. FAMOTIDINE. [Concomitant]
     Active Substance: FAMOTIDINE
  3. SEPTRA [Concomitant]
     Active Substance: SULFAMETHOXAZOLE\TRIMETHOPRIM
  4. DEXAMETHASONE. [Suspect]
     Active Substance: DEXAMETHASONE
     Dates: end: 20200924
  5. GABAPENTIN. [Concomitant]
     Active Substance: GABAPENTIN
  6. ONDANSETRON [Concomitant]
     Active Substance: ONDANSETRON
  7. ONCASPAR [Suspect]
     Active Substance: PEGASPARGASE
     Dates: end: 20200914
  8. LAX-A-DAY [Concomitant]
     Active Substance: POLYETHYLENE GLYCOL 3350
  9. VINCRISTINE SULFATE. [Suspect]
     Active Substance: VINCRISTINE SULFATE
     Dates: end: 20200924

REACTIONS (5)
  - Abdominal pain [None]
  - Dyspnoea [None]
  - Nausea [None]
  - Cardio-respiratory arrest [None]
  - Sleep disorder [None]

NARRATIVE: CASE EVENT DATE: 20200926
